FAERS Safety Report 9343828 (Version 1)
Quarter: 2013Q2

REPORT INFORMATION
  Report Type: Spontaneous
  Country: DK (occurrence: DK)
  Receive Date: 20130612
  Receipt Date: 20130612
  Transmission Date: 20140414
  Serious: Yes (Other)
  Sender: FDA-Public Use
  Company Number: DK-EISAI INC-E2090-02685-SPO-DK

PATIENT
  Sex: Female

DRUGS (4)
  1. ZONEGRAN [Suspect]
     Indication: PRODUCT USED FOR UNKNOWN INDICATION
     Route: 048
  2. KEPPRA [Concomitant]
  3. OXCARBAZEPIN [Concomitant]
     Dosage: 100 MG +125 MG
  4. FLIXOTIDE [Concomitant]
     Dosage: UNKNOWN

REACTIONS (1)
  - Hypokalaemia [Recovered/Resolved]
